FAERS Safety Report 7281504-3 (Version None)
Quarter: 2011Q1

REPORT INFORMATION
  Report Type: 
  Country: None (occurrence: None)
  Receive Date: 20110208
  Receipt Date: 20110127
  Transmission Date: 20110831
  Serious: Yes (Disabling)
  Sender: FDA-Public Use
  Company Number: PHHY2011US05336

PATIENT
  Sex: Male

DRUGS (5)
  1. OXYCONTIN [Concomitant]
  2. DULCOLAX [Concomitant]
  3. AFINITOR [Suspect]
     Indication: RENAL CELL CARCINOMA
     Dosage: 10 MG, QD
     Route: 048
     Dates: start: 20100901
  4. FERROUS SULFATE TAB [Concomitant]
  5. SENNA [Concomitant]

REACTIONS (2)
  - PHLEBITIS [None]
  - VEIN DISORDER [None]
